FAERS Safety Report 17900747 (Version 3)
Quarter: 2020Q3

REPORT INFORMATION
  Report Type: Spontaneous
  Country: US (occurrence: US)
  Receive Date: 20200616
  Receipt Date: 20200818
  Transmission Date: 20201103
  Serious: No
  Sender: FDA-Public Use
  Company Number: US-GLAXOSMITHKLINE-US2020AMR101119

PATIENT
  Sex: Female

DRUGS (2)
  1. ZEJULA [Suspect]
     Active Substance: NIRAPARIB
     Dosage: 200 MG, QD
     Route: 048
  2. ZEJULA [Suspect]
     Active Substance: NIRAPARIB
     Indication: OVARIAN CANCER
     Dosage: 100 MG, QD
     Dates: start: 20200601

REACTIONS (7)
  - Product dose omission issue [Unknown]
  - Blood pressure increased [Unknown]
  - Feeling abnormal [Unknown]
  - Product use issue [Unknown]
  - Nausea [Unknown]
  - White blood cell count decreased [Unknown]
  - Off label use [Unknown]
